FAERS Safety Report 12779888 (Version 1)
Quarter: 2016Q3

REPORT INFORMATION
  Report Type: Spontaneous
  Country: US (occurrence: US)
  Receive Date: 20160926
  Receipt Date: 20160926
  Transmission Date: 20161109
  Serious: No
  Sender: FDA-Public Use
  Company Number: US-PFIZER INC-2016447991

PATIENT
  Age: 55 Year
  Sex: Female

DRUGS (4)
  1. VITAMIN D3 [Concomitant]
     Active Substance: CHOLECALCIFEROL
     Dosage: UNK
  2. XELJANZ XR [Suspect]
     Active Substance: TOFACITINIB CITRATE
     Dosage: 11 MG, 1X/DAY
     Route: 048
  3. CAT^S CLAW [Concomitant]
     Active Substance: CAT^S CLAW
     Dosage: UNK
  4. TURMERIC [Concomitant]
     Active Substance: TURMERIC
     Dosage: UNK

REACTIONS (1)
  - Urinary tract infection [Unknown]
